FAERS Safety Report 5910468-7 (Version None)
Quarter: 2008Q4

REPORT INFORMATION
  Report Type: 
  Country: None (occurrence: None)
  Receive Date: 20081006
  Receipt Date: 20081006
  Transmission Date: 20090506
  Serious: Yes (Disabling)
  Sender: FDA-Public Use
  Company Number: None

PATIENT
  Age: 33 Year
  Sex: Male
  Weight: 81.8 kg

DRUGS (1)
  1. UNASYN [Suspect]
     Indication: ANTIBIOTIC PROPHYLAXIS
     Dosage: 3G Q6H IV
     Route: 042
     Dates: start: 20081004, end: 20081005

REACTIONS (1)
  - RASH [None]
